FAERS Safety Report 9625529 (Version 4)
Quarter: 2013Q4

REPORT INFORMATION
  Report Type: Report from Study
  Country: US (occurrence: US)
  Receive Date: 20131016
  Receipt Date: 20131217
  Transmission Date: 20140711
  Serious: Yes (Death, Hospitalization)
  Sender: FDA-Public Use
  Company Number: US-DENDREON CORPORATION-2013PROUSA03068

PATIENT
  Age: 80 Year
  Sex: Male
  Weight: 71.47 kg

DRUGS (9)
  1. SIPULEUCEL-T [Suspect]
     Indication: PROSTATE CANCER METASTATIC
     Dosage: 250 ML, SINGLE
     Route: 042
     Dates: start: 20130715, end: 20130715
  2. SIPULEUCEL-T [Suspect]
     Dosage: 250 ML, SINGLE
     Route: 042
     Dates: start: 20130729, end: 20130729
  3. CALCIUM WITH VITAMIN D [Concomitant]
     Dosage: 500 MG, UNK
  4. ASPIRIN [Concomitant]
     Indication: PROPHYLAXIS
     Dosage: 81 MG, UNK
  5. LISINOPRIL [Concomitant]
     Indication: HYPERTENSION
     Dosage: 20 MG, UNK
  6. NORVASC [Concomitant]
  7. AMLODIPINE [Concomitant]
     Indication: HYPERTENSION
  8. CALCIUM CARBONATE [Concomitant]
     Indication: SUPPLEMENTATION THERAPY
     Dosage: 500 MG, UNK
  9. VITAMIN D [Concomitant]
     Indication: SUPPLEMENTATION THERAPY
     Dosage: 400 UNITS, UNK

REACTIONS (3)
  - Pulmonary embolism [Fatal]
  - Renal failure [Fatal]
  - Hepatic failure [Fatal]
